FAERS Safety Report 14759161 (Version 6)
Quarter: 2019Q3

REPORT INFORMATION
  Report Type: Report from Study
  Country: IT (occurrence: IT)
  Receive Date: 20180413
  Receipt Date: 20190808
  Transmission Date: 20191004
  Serious: Yes (Death, Hospitalization, Other)
  Sender: FDA-Public Use
  Company Number: IT-MYLANLABS-2018M1022996

PATIENT
  Age: 78 Year
  Sex: Male
  Weight: 70 kg

DRUGS (37)
  1. PREDNISONE. [Suspect]
     Active Substance: PREDNISONE
     Dosage: 10 MG, QD
     Route: 048
     Dates: start: 20151020, end: 20171107
  2. PREDNISONE. [Suspect]
     Active Substance: PREDNISONE
     Indication: PROSTATE CANCER
     Dosage: 10 MILLIGRAM, QD
     Route: 048
     Dates: start: 20151020, end: 20171107
  3. ABIRATERONE. [Suspect]
     Active Substance: ABIRATERONE ACETATE
     Indication: PROSTATE CANCER
     Dosage: 1000 MG, QD,(1000 MG, DAILY)
     Route: 048
     Dates: start: 20151020, end: 20171107
  4. MATRIFEN [Suspect]
     Active Substance: FENTANYL
     Indication: ARTHRALGIA
     Dosage: 50 MICROGRAM, QH,(EVERY 3 DAYS)
     Route: 062
     Dates: start: 20170726
  5. MATRIFEN [Suspect]
     Active Substance: FENTANYL
     Dosage: UNK
     Route: 065
  6. OXYCONTIN [Suspect]
     Active Substance: OXYCODONE HYDROCHLORIDE
     Indication: PAIN IN EXTREMITY
     Dosage: 10 MILLIGRAM, BID, 20 MILLIGRAM, QD
     Route: 048
     Dates: start: 20170803
  7. FENTANYL CITRATE. [Concomitant]
     Active Substance: FENTANYL CITRATE
     Indication: PAIN IN EXTREMITY
     Dosage: UNK,(50 MCG/HR,UNK)
     Route: 065
  8. DELTACORTENE [Concomitant]
     Active Substance: PREDNISONE
     Indication: PROSTATE CANCER
     Dosage: 12.5 MILLIGRAM, QD
     Route: 065
     Dates: start: 201709
  9. DELTACORTENE [Concomitant]
     Active Substance: PREDNISONE
     Indication: ARTHRALGIA
  10. FENTANYL                           /00174602/ [Concomitant]
     Active Substance: FENTANYL
     Dosage: 50 MICROGRAM, QH
     Route: 065
     Dates: start: 201709
  11. FENTANYL. [Suspect]
     Active Substance: FENTANYL
     Indication: PAIN IN EXTREMITY
     Dosage: 50 MCG/HRS EVERY 3 DAYS
     Route: 062
     Dates: start: 20170726
  12. ORAMORPH [Concomitant]
     Active Substance: MORPHINE SULFATE
     Indication: PAIN IN EXTREMITY
     Dosage: 12 GTT DROPS, PRN
     Route: 048
     Dates: start: 20170726
  13. SOLDESAM [Concomitant]
     Active Substance: DEXAMETHASONE
     Indication: PAIN IN EXTREMITY
     Dosage: 64 GTT DROPS, QD
     Route: 065
     Dates: start: 20170802
  14. SOLDESAM [Concomitant]
     Active Substance: DEXAMETHASONE
     Indication: ARTHRALGIA
  15. CALCIUM SANDOZ                     /00060701/ [Concomitant]
     Active Substance: CALCIUM GLUCONATE
     Dosage: UNK
     Route: 065
  16. DELTACORTENE [Concomitant]
     Active Substance: PREDNISONE
     Indication: PAIN IN EXTREMITY
  17. PREDNISONE. [Suspect]
     Active Substance: PREDNISONE
     Indication: PROSTATE CANCER
     Dosage: DOSAGE FORM: UNSPECIFIED
     Route: 065
  18. OXYCODONE HYDROCHLORIDE. [Suspect]
     Active Substance: OXYCODONE HYDROCHLORIDE
     Indication: PAIN IN EXTREMITY
     Dosage: 20 MG, DAILY
     Route: 048
     Dates: start: 20170803
  19. OXYCONTIN [Suspect]
     Active Substance: OXYCODONE HYDROCHLORIDE
     Indication: ARTHRALGIA
     Dosage: 10 MILLIGRAM, QD
     Route: 048
     Dates: start: 20170803
  20. FENTANYL. [Suspect]
     Active Substance: FENTANYL
     Dosage: 50 MILLIGRAM, Q3D
     Route: 062
     Dates: start: 20170726
  21. FENTANYL CITRATE. [Concomitant]
     Active Substance: FENTANYL CITRATE
     Dosage: 133 MICROGRAM, PRN
     Route: 048
     Dates: start: 201709
  22. TACHIPIRINA [Concomitant]
     Active Substance: ACETAMINOPHEN
     Indication: PAIN IN EXTREMITY
     Dosage: 2000 MILLIGRAM, QD
     Route: 048
     Dates: start: 201709, end: 20171003
  23. DEXAMETHASONE. [Concomitant]
     Active Substance: DEXAMETHASONE
     Indication: WEIGHT DECREASED
     Dosage: 4 MILLIGRAM, QD
     Route: 042
     Dates: start: 20170912, end: 20170920
  24. MATRIFEN [Suspect]
     Active Substance: FENTANYL
     Indication: PAIN IN EXTREMITY
     Dosage: UNK UNK, Q3D
     Route: 062
     Dates: start: 20170726
  25. ENZALUTAMIDE [Suspect]
     Active Substance: ENZALUTAMIDE
     Indication: PROSTATE CANCER
     Dosage: 160 MILLIGRAM, QD
     Route: 048
     Dates: start: 20140603, end: 20171107
  26. OXYCONTIN [Suspect]
     Active Substance: OXYCODONE HYDROCHLORIDE
     Dosage: UNK
     Route: 065
  27. ENANTONE LP [Concomitant]
     Active Substance: LEUPROLIDE ACETATE
     Indication: PROSTATE CANCER
     Dosage: DOSAGE FORM: UNSPECIFIED
     Route: 065
     Dates: start: 201211
  28. ENANTONE LP [Concomitant]
     Active Substance: LEUPROLIDE ACETATE
     Dosage: 11.25 MILLIGRAM, MONTHLY
     Route: 030
     Dates: start: 201211
  29. VELLOFENT [Concomitant]
     Indication: PAIN IN EXTREMITY
     Dosage: DOSAGE FORM: UNSPECIFIED
     Route: 065
  30. ZOMETA [Concomitant]
     Active Substance: ZOLEDRONIC ACID
     Indication: PROSTATE CANCER
     Dosage: UNK
     Dates: start: 20111108, end: 20170727
  31. DEXAMETHASONE. [Concomitant]
     Active Substance: DEXAMETHASONE
     Indication: DECREASED APPETITE
  32. ENANTONE MONATS-DEPOT [Concomitant]
     Active Substance: LEUPROLIDE ACETATE
     Indication: PROSTATE CANCER
     Dosage: 11.25 MILLIGRAM (11.25 MG, Q3M )
     Route: 030
     Dates: start: 201211
  33. ORAMORPH [Concomitant]
     Active Substance: MORPHINE SULFATE
     Indication: ARTHRALGIA
  34. CALCIUM SANDOZ                     /00060701/ [Concomitant]
     Active Substance: CALCIUM GLUCONATE
     Indication: HYPOCALCAEMIA
     Dosage: 0.5 DOSAGE FORM, QD
     Route: 065
     Dates: start: 20170823, end: 20170919
  35. OXYCODONE HYDROCHLORIDE. [Suspect]
     Active Substance: OXYCODONE HYDROCHLORIDE
     Indication: ARTHRALGIA
  36. LYRICA [Concomitant]
     Active Substance: PREGABALIN
     Indication: PAIN IN EXTREMITY
     Dosage: 150 MILLIGRAM, QD
     Route: 065
     Dates: start: 201704
  37. FENTANYL                           /00174602/ [Concomitant]
     Active Substance: FENTANYL
     Indication: PAIN IN EXTREMITY
     Dosage: 133 MICROGRAM, PRN
     Route: 048

REACTIONS (4)
  - Disease progression [Fatal]
  - Decreased appetite [Recovered/Resolved]
  - Pain in extremity [Recovered/Resolved]
  - Condition aggravated [Unknown]

NARRATIVE: CASE EVENT DATE: 20171007
